FAERS Safety Report 9378310 (Version 1)
Quarter: 2013Q3

REPORT INFORMATION
  Report Type: Spontaneous
  Country: SE (occurrence: SE)
  Receive Date: 20130701
  Receipt Date: 20130701
  Transmission Date: 20140515
  Serious: Yes (Hospitalization)
  Sender: FDA-Public Use
  Company Number: SE-TEVA-389177ISR

PATIENT
  Age: 55 Year
  Sex: Female

DRUGS (3)
  1. RATIOGRASTIM [Suspect]
     Dates: start: 201212
  2. BETAPRED [Concomitant]
     Dosage: SINGLE DOSE, 3-4 DAYS BEFORE CHEMOTHERAPY
  3. CHEMOTHERAPY [Concomitant]

REACTIONS (2)
  - Leukocytosis [Not Recovered/Not Resolved]
  - Abdominal pain [Not Recovered/Not Resolved]
